FAERS Safety Report 4449828-2 (Version None)
Quarter: 2004Q3

REPORT INFORMATION
  Report Type: 
  Country: None (occurrence: None)
  Receive Date: 20040802
  Receipt Date: 20040405
  Transmission Date: 20050211
  Serious: No
  Sender: FDA-Public Use
  Company Number: 2004-114628-NL

PATIENT
  Age: 22 Year
  Sex: Female
  Weight: 81.8 kg

DRUGS (4)
  1. NUVARING [Suspect]
     Indication: ENDOMETRIOSIS
     Dosage: DF DAILY VAGINAL
     Route: 067
     Dates: start: 20031101, end: 20040402
  2. CELEXA [Concomitant]
  3. KLONOPIN [Concomitant]
  4. NAPROXEN [Concomitant]

REACTIONS (4)
  - ASTHENIA [None]
  - FATIGUE [None]
  - METRORRHAGIA [None]
  - PYREXIA [None]
